FAERS Safety Report 6159962-7 (Version None)
Quarter: 2009Q2

REPORT INFORMATION
  Report Type: 
  Country: None (occurrence: None)
  Receive Date: 20090415
  Receipt Date: 20090331
  Transmission Date: 20091009
  Serious: Yes (Life-Threatening)
  Sender: FDA-Public Use
  Company Number: DSA_33492_2009

PATIENT
  Age: 71 Year
  Sex: Male

DRUGS (14)
  1. ENALAPRIL MALEATE [Suspect]
     Indication: HYPERTENSION
     Dosage: (5 MG QD ORAL)
     Route: 048
     Dates: end: 20090204
  2. ELAVIL [Suspect]
     Indication: DEPRESSION
     Dosage: (10 MG QD ORAL), (55 MG QD ORAL), (100 MG QD ORAL)
     Route: 048
     Dates: start: 20081225, end: 20090104
  3. ELAVIL [Suspect]
     Indication: DEPRESSION
     Dosage: (10 MG QD ORAL), (55 MG QD ORAL), (100 MG QD ORAL)
     Route: 048
     Dates: start: 20090105, end: 20090106
  4. ELAVIL [Suspect]
     Indication: DEPRESSION
     Dosage: (10 MG QD ORAL), (55 MG QD ORAL), (100 MG QD ORAL)
     Route: 048
     Dates: start: 20090107, end: 20090204
  5. ADALAT L (UNKNOWN) [Concomitant]
  6. BENZALIN (UNKNOWN) [Concomitant]
  7. CEPHADOL (UNKNOWN) [Concomitant]
  8. CONIEL (UNKNOWN) [Concomitant]
  9. DOGMATYL [Concomitant]
  10. LENDODRMIN [Concomitant]
  11. ROHYPNOL [Concomitant]
  12. URINORM (UNKNOWN) [Concomitant]
  13. CONSTAN / 00595201/ (UNKNOWN) [Concomitant]
  14. HIRNAMIN /00038601/ (UNKNOWN) [Concomitant]

REACTIONS (15)
  - AGITATION [None]
  - ANXIETY [None]
  - BLOOD URIC ACID INCREASED [None]
  - CONSTIPATION [None]
  - DIALYSIS [None]
  - FEELING ABNORMAL [None]
  - HYPERKALAEMIA [None]
  - HYPOCHONDRIASIS [None]
  - MAJOR DEPRESSION [None]
  - PYREXIA [None]
  - RENAL FAILURE [None]
  - RESTLESSNESS [None]
  - TERMINAL INSOMNIA [None]
  - URINARY RETENTION [None]
  - VERTIGO [None]
